FAERS Safety Report 5149681-8 (Version None)
Quarter: 2006Q4

REPORT INFORMATION
  Report Type: 
  Country: None (occurrence: None)
  Receive Date: 20061113
  Receipt Date: 20060713
  Transmission Date: 20070319
  Serious: No
  Sender: FDA-Public Use
  Company Number: US-GLAXOSMITHKLINE-A0612193A

PATIENT
  Age: 55 Year
  Sex: Male

DRUGS (7)
  1. COREG [Suspect]
     Dosage: 6.25MG TWICE PER DAY
     Route: 048
  2. DIGOXIN [Concomitant]
  3. SYNTHROID [Concomitant]
  4. BUMEX [Concomitant]
  5. GLYNASE [Concomitant]
  6. ACTOS [Concomitant]
  7. PROTONIX [Concomitant]

REACTIONS (2)
  - ARTHRALGIA [None]
  - MUSCLE RIGIDITY [None]
